FAERS Safety Report 16667052 (Version 7)
Quarter: 2019Q4

REPORT INFORMATION
  Report Type: Report from Study
  Country: JP (occurrence: JP)
  Receive Date: 20190805
  Receipt Date: 20191227
  Transmission Date: 20200122
  Serious: Yes (Hospitalization)
  Sender: FDA-Public Use
  Company Number: JP-EISAI MEDICAL RESEARCH-EC-2019-059989

PATIENT
  Age: 54 Year
  Sex: Female
  Weight: 58 kg

DRUGS (10)
  1. SHIGMABITAN [Concomitant]
  2. THYRADIN [Concomitant]
     Active Substance: LEVOTHYROXINE
  3. ETHYL ICOSAPENTATE [Concomitant]
     Active Substance: ICOSAPENT ETHYL
  4. METHYLCOBAL [Concomitant]
     Active Substance: METHYLCOBALAMIN
  5. ERIBULIN [Suspect]
     Active Substance: ERIBULIN
     Indication: LIP AND/OR ORAL CAVITY CANCER
     Route: 042
     Dates: start: 20190131, end: 2019
  6. MIYA-BM [Concomitant]
     Active Substance: CLOSTRIDIUM BUTYRICUM SPORES STRAIN M-55
  7. EXCELASE [Concomitant]
     Active Substance: PANCRELIPASE
  8. POLAPREZINC [Concomitant]
     Active Substance: POLAPREZINC
  9. ADETPHOS [Concomitant]
     Active Substance: ADENOSINE TRIPHOSPHATE
  10. ERIBULIN [Suspect]
     Active Substance: ERIBULIN
     Route: 042
     Dates: start: 20190808

REACTIONS (2)
  - Osteomyelitis [Recovered/Resolved]
  - Febrile neutropenia [Recovered/Resolved]

NARRATIVE: CASE EVENT DATE: 20190730
